FAERS Safety Report 10031855 (Version 3)
Quarter: 2017Q1

REPORT INFORMATION
  Report Type: Spontaneous
  Country: US (occurrence: US)
  Receive Date: 20140324
  Receipt Date: 20170313
  Transmission Date: 20170428
  Serious: Yes (Death, Life-Threatening, Hospitalization)
  Sender: FDA-Public Use
  Company Number: US-JNJFOC-20140312981

PATIENT
  Age: 7 Year
  Sex: Male

DRUGS (2)
  1. INFLIXIMAB, RECOMBINANT [Suspect]
     Active Substance: INFLIXIMAB
     Indication: COLITIS ULCERATIVE
     Route: 042
  2. INFLIXIMAB, RECOMBINANT [Suspect]
     Active Substance: INFLIXIMAB
     Indication: CHOLANGITIS SCLEROSING
     Route: 042

REACTIONS (5)
  - Haemorrhagic stroke [Fatal]
  - Infusion related reaction [Recovered/Resolved]
  - Nervous system disorder [Fatal]
  - Anaphylactic reaction [Unknown]
  - Sinus arrhythmia [Recovered/Resolved]
